FAERS Safety Report 4525542-X (Version None)
Quarter: 2004Q4

REPORT INFORMATION
  Report Type: 
  Country: None (occurrence: None)
  Receive Date: 20041116
  Receipt Date: 20040922
  Transmission Date: 20050328
  Serious: No
  Sender: FDA-Public Use
  Company Number: S04-USA-06422-01

PATIENT
  Age: 82 Year
  Sex: Female

DRUGS (6)
  1. NAMENDA [Suspect]
     Indication: DEMENTIA ALZHEIMER'S TYPE
     Dosage: 15 MG QD PO
     Route: 048
     Dates: start: 20040919, end: 20040921
  2. NAMENDA [Suspect]
     Indication: DEMENTIA ALZHEIMER'S TYPE
     Dosage: 5 MG QD PO
     Route: 048
     Dates: start: 20040905, end: 20040911
  3. NAMENDA [Suspect]
     Indication: DEMENTIA ALZHEIMER'S TYPE
     Dosage: 10 MG QD PO
     Route: 048
     Dates: start: 20040912, end: 20040918
  4. LIPITOR [Concomitant]
  5. ZOLOFT [Concomitant]
  6. RISPERDAL [Concomitant]

REACTIONS (1)
  - SOMNOLENCE [None]
